FAERS Safety Report 17883263 (Version 2)
Quarter: 2020Q3

REPORT INFORMATION
  Report Type: Report from Study
  Country: FR (occurrence: FR)
  Receive Date: 20200611
  Receipt Date: 20200717
  Transmission Date: 20201103
  Serious: Yes (Hospitalization, Other)
  Sender: FDA-Public Use
  Company Number: FR-ROCHE-1704231

PATIENT
  Age: 67 Year
  Sex: Female

DRUGS (5)
  1. CELECTOL [Concomitant]
     Active Substance: CELIPROLOL HYDROCHLORIDE
  2. NISIS [Concomitant]
     Active Substance: VALSARTAN
  3. BEVACIZUMAB. [Suspect]
     Active Substance: BEVACIZUMAB
     Indication: OVARIAN CANCER
     Dosage: LAST DOSE PRIOR TO SAE:13/JAN/2016
     Route: 065
     Dates: start: 20151021
  4. BLINDED OLAPARIB [Suspect]
     Active Substance: OLAPARIB
     Indication: OVARIAN CANCER
     Route: 065
     Dates: start: 20151022
  5. BLINDED OLAPARIB [Suspect]
     Active Substance: OLAPARIB
     Route: 065
     Dates: start: 20151021

REACTIONS (2)
  - Hypertension [Recovered/Resolved]
  - Myelodysplastic syndrome [Not Recovered/Not Resolved]

NARRATIVE: CASE EVENT DATE: 20160128
